FAERS Safety Report 13026731 (Version 2)
Quarter: 2016Q4

REPORT INFORMATION
  Report Type: Report from Study
  Country: HN (occurrence: HN)
  Receive Date: 20161214
  Receipt Date: 20161226
  Transmission Date: 20170207
  Serious: Yes (Other)
  Sender: FDA-Public Use
  Company Number: PHHY2016HN170592

PATIENT
  Sex: Female
  Weight: 72.56 kg

DRUGS (2)
  1. METFORMIN [Concomitant]
     Active Substance: METFORMIN HYDROCHLORIDE
     Indication: PRODUCT USED FOR UNKNOWN INDICATION
     Route: 065
  2. EXFORGE [Suspect]
     Active Substance: AMLODIPINE BESYLATE\VALSARTAN
     Indication: HYPERTENSION
     Dosage: 1 DF, QD (10 MG AMLODIPINE/320MG VALSARTAN)
     Route: 048

REACTIONS (10)
  - Movement disorder [Unknown]
  - Cough [Recovered/Resolved]
  - Back pain [Unknown]
  - Gait disturbance [Unknown]
  - Blood pressure systolic increased [Unknown]
  - Osteoarthritis [Unknown]
  - Dysstasia [Unknown]
  - Pain in extremity [Unknown]
  - Arthralgia [Unknown]
  - Scoliosis [Unknown]
